FAERS Safety Report 4701858-9 (Version None)
Quarter: 2005Q2

REPORT INFORMATION
  Report Type: 
  Country: None (occurrence: None)
  Receive Date: 20050627
  Receipt Date: 20050616
  Transmission Date: 20051028
  Serious: Yes (Other)
  Sender: FDA-Public Use
  Company Number: 215272

PATIENT
  Age: 7 Year
  Sex: Male

DRUGS (3)
  1. NUTROPIN AQ [Suspect]
     Indication: HYPOPITUITARISM
     Dosage: 0.8MG, QD, SUBCUTANEOUS
     Route: 058
     Dates: start: 19980216
  2. SYNTHROID [Suspect]
     Indication: HYPOPITUITARISM
     Dosage: 50 UG, QD
  3. CORTEF [Suspect]
     Indication: HYPOPITUITARISM
     Dosage: 1.25MG, BID

REACTIONS (10)
  - ACUTE LYMPHOCYTIC LEUKAEMIA [None]
  - ANAEMIA [None]
  - DIARRHOEA [None]
  - HYPOGLYCAEMIA [None]
  - NEUTROPENIA [None]
  - ORAL INTAKE REDUCED [None]
  - PLEURAL EFFUSION [None]
  - PNEUMONIA [None]
  - SEPSIS [None]
  - THROMBOCYTOPENIA [None]
